FAERS Safety Report 5443636-1 (Version None)
Quarter: 2007Q3

REPORT INFORMATION
  Report Type: 
  Country: None (occurrence: None)
  Receive Date: 20070905
  Receipt Date: 20070829
  Transmission Date: 20080115
  Serious: Yes (Death)
  Sender: FDA-Public Use
  Company Number: HQWYE898929AUG07

PATIENT
  Sex: Female

DRUGS (1)
  1. CORDARONE [Suspect]
     Indication: SUPRAVENTRICULAR TACHYCARDIA
     Dosage: 150 MG DILUTED WITH 50% GLUCOSE 40 ML IV BOLUS
     Route: 042
     Dates: start: 20070603, end: 20070603

REACTIONS (1)
  - CARDIAC ARREST [None]
